FAERS Safety Report 7319803-9 (Version None)
Quarter: 2011Q1

REPORT INFORMATION
  Report Type: 
  Country: None (occurrence: None)
  Receive Date: 20110228
  Receipt Date: 20100928
  Transmission Date: 20110831
  Serious: Yes (Hospitalization)
  Sender: FDA-Public Use
  Company Number: A0884289A

PATIENT
  Age: 25 Year
  Sex: Male

DRUGS (3)
  1. LAMICTAL [Suspect]
     Indication: BIPOLAR DISORDER
     Route: 048
     Dates: start: 20080325, end: 20080525
  2. INVEGA [Concomitant]
  3. DEPAKOTE [Concomitant]
     Indication: BIPOLAR DISORDER
     Dosage: 1000MG PER DAY

REACTIONS (1)
  - STEVENS-JOHNSON SYNDROME [None]
